FAERS Safety Report 5775015-1 (Version None)
Quarter: 2008Q2

REPORT INFORMATION
  Report Type: 
  Country: None (occurrence: None)
  Receive Date: 20080617
  Receipt Date: 20080603
  Transmission Date: 20081010
  Serious: No
  Sender: FDA-Public Use
  Company Number: JP-GILEAD-E2B_00000147

PATIENT
  Sex: Female

DRUGS (13)
  1. HEPSERA [Suspect]
     Indication: HEPATIC CIRRHOSIS
     Route: 048
     Dates: start: 20050119, end: 20080527
  2. ZEFIX [Concomitant]
     Indication: DRUG USE FOR UNKNOWN INDICATION
     Route: 048
  3. FUROSEMIDE [Concomitant]
  4. ALOSENN [Concomitant]
     Route: 048
  5. GLYSENNID [Concomitant]
     Route: 048
  6. GLIMICRON [Concomitant]
     Route: 048
  7. LUVOX [Concomitant]
     Route: 048
  8. LEVOTHYROXINE SODIUM [Concomitant]
     Route: 048
  9. HALCION [Concomitant]
     Route: 048
  10. RABEPRAZOLE SODIUM [Concomitant]
  11. ALLEGRA [Concomitant]
  12. MAGMITT [Concomitant]
  13. FLUTIDE [Concomitant]

REACTIONS (4)
  - BLOOD CREATININE INCREASED [None]
  - BLOOD PARATHYROID HORMONE INCREASED [None]
  - HYPERPARATHYROIDISM [None]
  - RENAL DISORDER [None]
